FAERS Safety Report 8956864 (Version 3)
Quarter: 2013Q1

REPORT INFORMATION
  Report Type: Report from Study
  Country: US (occurrence: US)
  Receive Date: 20121210
  Receipt Date: 20130116
  Transmission Date: 20140127
  Serious: Yes (Hospitalization)
  Sender: FDA-Public Use
  Company Number: US-ACTELION-A-NJ2012-75651

PATIENT
  Age: 59 Year
  Sex: Female

DRUGS (4)
  1. TRACLEER [Suspect]
     Indication: PULMONARY ARTERIAL HYPERTENSION
     Dosage: UNK
     Route: 048
  2. VELETRI [Suspect]
     Indication: PULMONARY ARTERIAL HYPERTENSION
     Dosage: 74.5 NG/KG, PER MIN
     Route: 041
     Dates: start: 20120423
  3. SILDENAFIL [Concomitant]
  4. COUMADIN [Concomitant]

REACTIONS (5)
  - Device related infection [Recovering/Resolving]
  - Catheter site swelling [Recovering/Resolving]
  - Catheter site erythema [Recovering/Resolving]
  - Catheter site pain [Recovering/Resolving]
  - Pseudomonas test positive [Recovering/Resolving]
